FAERS Safety Report 19963385 (Version 1)
Quarter: 2021Q4

REPORT INFORMATION
  Report Type: Other
  Country: CN (occurrence: CN)
  Receive Date: 20211018
  Receipt Date: 20211018
  Transmission Date: 20220303
  Serious: Yes (Other)
  Sender: FDA-Public Use
  Company Number: CN-ROCHE-2928982

PATIENT

DRUGS (1)
  1. CAPECITABINE [Suspect]
     Active Substance: CAPECITABINE
     Indication: Rectal cancer
     Dosage: DAY1-DAY14, 21 DAYS AS A CYCLE, TOTAL 2 CYCLES
     Route: 048

REACTIONS (2)
  - Myelosuppression [Unknown]
  - Gastroenteritis radiation [Unknown]
